FAERS Safety Report 4947914-1 (Version None)
Quarter: 2006Q1

REPORT INFORMATION
  Report Type: 
  Country: None (occurrence: None)
  Receive Date: 20060314
  Receipt Date: 20060106
  Transmission Date: 20060701
  Serious: Yes (Other)
  Sender: FDA-Public Use
  Company Number: CIP05002931

PATIENT
  Age: 49 Year
  Sex: Female

DRUGS (2)
  1. ACTONEL [Suspect]
     Indication: OSTEOPOROSIS
     Dosage: 35 MG ONCE WEEKLY, ORAL
     Route: 048
     Dates: start: 20050303, end: 20050601
  2. MAGALDRATE (MAGALDRATE) [Concomitant]

REACTIONS (12)
  - DYSPEPSIA [None]
  - DYSPHAGIA [None]
  - ERUCTATION [None]
  - GASTRITIS [None]
  - GASTROOESOPHAGEAL REFLUX DISEASE [None]
  - OESOPHAGEAL PAIN [None]
  - OESOPHAGITIS [None]
  - OESOPHAGOSCOPY ABNORMAL [None]
  - REGURGITATION OF FOOD [None]
  - STOMACH DISCOMFORT [None]
  - THERAPY NON-RESPONDER [None]
  - WEIGHT DECREASED [None]
